FAERS Safety Report 4852364-2 (Version None)
Quarter: 2005Q4

REPORT INFORMATION
  Report Type: 
  Country: None (occurrence: None)
  Receive Date: 20051209
  Receipt Date: 20051201
  Transmission Date: 20060501
  Serious: Yes (Disabling)
  Sender: FDA-Public Use
  Company Number: 2005164234

PATIENT
  Age: 26 Year
  Sex: Female

DRUGS (3)
  1. ZOLOFT [Suspect]
     Indication: OBSESSIVE-COMPULSIVE DISORDER
     Dosage: 100 MG (1 D); ORAL
     Route: 048
  2. ETHINYL ESTRADIOL TAB [Concomitant]
  3. LEVONORGESTREL [Concomitant]

REACTIONS (1)
  - DEAFNESS NEUROSENSORY [None]
